FAERS Safety Report 20278898 (Version 7)
Quarter: 2022Q3

REPORT INFORMATION
  Report Type: Report from Study
  Country: CN (occurrence: CN)
  Receive Date: 20220103
  Receipt Date: 20220728
  Transmission Date: 20221027
  Serious: Yes (Death, Other)
  Sender: FDA-Public Use
  Company Number: CN-BoehringerIngelheim-2021-BI-138314

PATIENT
  Age: 76 Year
  Sex: Male
  Weight: 70 kg

DRUGS (15)
  1. ALTEPLASE [Suspect]
     Active Substance: ALTEPLASE
     Indication: Ischaemic stroke
     Dosage: MOST RECENT DOSE: 07/NOV/2021
     Route: 042
     Dates: start: 20211107
  2. GLYCEROL AND FRUCTOSE [Concomitant]
     Indication: Dehydration
     Dosage: 50G+25G+500ML?ROUTE OF ADMIN: IV DROP
     Route: 042
     Dates: start: 20211108, end: 20211111
  3. CEFTRIAXONE SODIUM [Concomitant]
     Active Substance: CEFTRIAXONE SODIUM
     Indication: Infection
     Dosage: ROUTE OF ADMIN: IV DROP
     Route: 042
     Dates: start: 20211108, end: 20211111
  4. POTASSIUM CHLORIDE [Concomitant]
     Active Substance: POTASSIUM CHLORIDE
     Indication: Nutritional supplementation
     Dosage: ROUTE OF ADMIN: IV DROP
     Route: 042
     Dates: start: 20211107, end: 20211111
  5. PANTOPRAZOLE SODIUM [Concomitant]
     Active Substance: PANTOPRAZOLE SODIUM
     Indication: Prophylaxis
     Dosage: ROUTE OF ADMIN: IV DROP
     Route: 042
     Dates: start: 20211107, end: 20211111
  6. BROMHEXINE HYDROCHLORIDE [Concomitant]
     Active Substance: BROMHEXINE HYDROCHLORIDE
     Indication: Productive cough
     Route: 042
     Dates: start: 20211108, end: 20211111
  7. BROMHEXINE HYDROCHLORIDE [Concomitant]
     Active Substance: BROMHEXINE HYDROCHLORIDE
     Route: 055
     Dates: start: 20211108, end: 20211111
  8. PULMICORT TURBUHALER [Concomitant]
     Active Substance: BUDESONIDE
     Indication: Productive cough
     Dosage: FORM OF ADMIN. SUSPENSION FOR INHALATION
     Route: 055
     Dates: start: 20211108, end: 20211111
  9. ACETYLCYSTEINE [Concomitant]
     Active Substance: ACETYLCYSTEINE
     Indication: Productive cough
     Dosage: FORM OF ADMIN. SUSPENSION FOR INHALATION
     Route: 055
     Dates: start: 20211108, end: 20211111
  10. CHYMOTRYPSIN [Concomitant]
     Active Substance: CHYMOTRYPSIN
     Indication: Productive cough
     Route: 055
     Dates: start: 20211108, end: 20211111
  11. ATORVASTATIN CALCIUM [Concomitant]
     Active Substance: ATORVASTATIN CALCIUM
     Indication: Lipids abnormal
     Route: 048
     Dates: start: 20211108, end: 20211111
  12. FUROSEMIDE [Concomitant]
     Active Substance: FUROSEMIDE
     Indication: Dehydration
     Route: 042
     Dates: start: 20211108, end: 20211108
  13. FUROSEMIDE [Concomitant]
     Active Substance: FUROSEMIDE
     Route: 042
     Dates: start: 20211108, end: 20211110
  14. MANNITOL [Concomitant]
     Active Substance: MANNITOL
     Indication: Intracranial pressure increased
     Dosage: ROUTE OF ADMIN: IV DROP
     Route: 042
     Dates: start: 20211109, end: 20211110
  15. INSULIN HUMAN [Concomitant]
     Active Substance: INSULIN HUMAN
     Indication: Blood glucose decreased
     Route: 042
     Dates: start: 20211109, end: 20211109

REACTIONS (3)
  - Basal ganglia haemorrhage [Fatal]
  - Hyperpyrexia [Not Recovered/Not Resolved]
  - Coma [Not Recovered/Not Resolved]

NARRATIVE: CASE EVENT DATE: 20211107
